FAERS Safety Report 6855534-7 (Version None)
Quarter: 2010Q3

REPORT INFORMATION
  Report Type: 
  Country: None (occurrence: None)
  Receive Date: 20100719
  Receipt Date: 20100706
  Transmission Date: 20110219
  Serious: Yes (Hospitalization)
  Sender: FDA-Public Use
  Company Number: US-JNJFOC-20100703004

PATIENT
  Sex: Male
  Weight: 115.67 kg

DRUGS (3)
  1. STELARA [Suspect]
     Indication: PSORIASIS
     Route: 058
  2. REMICADE [Suspect]
     Indication: PSORIASIS
     Route: 042
  3. ENBREL [Concomitant]

REACTIONS (1)
  - PROSTATE CANCER [None]
